FAERS Safety Report 12225970 (Version 4)
Quarter: 2018Q2

REPORT INFORMATION
  Report Type: Report from Study
  Country: US (occurrence: US)
  Receive Date: 20160331
  Receipt Date: 20180524
  Transmission Date: 20180711
  Serious: Yes (Hospitalization)
  Sender: FDA-Public Use
  Company Number: US-ACTELION-A-NJ2016-133641

PATIENT
  Age: 67 Year
  Sex: Female
  Weight: 72.56 kg

DRUGS (3)
  1. TRACLEER [Suspect]
     Active Substance: BOSENTAN
     Indication: PULMONARY ARTERIAL HYPERTENSION
     Dosage: 125 MG, BID
     Route: 048
  2. COUMADIN [Concomitant]
     Active Substance: WARFARIN SODIUM
  3. DILTIAZEM. [Concomitant]
     Active Substance: DILTIAZEM

REACTIONS (14)
  - Dyspnoea [Unknown]
  - Heart rate decreased [Unknown]
  - Chest pain [Unknown]
  - Lung infection [Unknown]
  - Pulmonary oedema [Not Recovered/Not Resolved]
  - Exercise tolerance decreased [Unknown]
  - Feeling abnormal [Unknown]
  - Dyspnoea exertional [Unknown]
  - Dizziness [Unknown]
  - Vertigo [Recovering/Resolving]
  - Syncope [Unknown]
  - Palpitations [Unknown]
  - Nervous system disorder [Unknown]
  - Colitis [Unknown]

NARRATIVE: CASE EVENT DATE: 201704
